FAERS Safety Report 11055741 (Version 2)
Quarter: 2015Q2

REPORT INFORMATION
  Report Type: Spontaneous
  Country: JP (occurrence: JP)
  Receive Date: 20150422
  Receipt Date: 20150427
  Transmission Date: 20150821
  Serious: Yes (Death, Other)
  Sender: FDA-Public Use
  Company Number: JP-009507513-1504JPN018282

PATIENT
  Age: 46 Year
  Sex: Male

DRUGS (4)
  1. HALCION [Suspect]
     Active Substance: TRIAZOLAM
     Dosage: DAILY DOSAGE UNKNOWN
     Route: 048
     Dates: start: 20150312
  2. BELSOMRA [Suspect]
     Active Substance: SUVOREXANT
     Dosage: 15 MG, QD
     Route: 048
     Dates: start: 20150406
  3. ROHYPNOL [Suspect]
     Active Substance: FLUNITRAZEPAM
     Dosage: DAILY DOSAGE UNKNOWN
     Route: 048
     Dates: start: 20150312
  4. GASTER [Concomitant]
     Active Substance: FAMOTIDINE
     Dosage: DAILY DOSAGE UNKNOWN
     Route: 048
     Dates: start: 20150312

REACTIONS (1)
  - Completed suicide [Fatal]

NARRATIVE: CASE EVENT DATE: 20150409
